FAERS Safety Report 8189110-3 (Version None)
Quarter: 2012Q1

REPORT INFORMATION
  Report Type: 
  Country: None (occurrence: None)
  Receive Date: 20120307
  Receipt Date: 20120229
  Transmission Date: 20120608
  Serious: No
  Sender: FDA-Public Use
  Company Number: US-BIOGENIDEC-2012BI007553

PATIENT
  Sex: Female

DRUGS (2)
  1. AVONEX [Suspect]
     Indication: MULTIPLE SCLEROSIS
     Route: 030
     Dates: end: 20090111
  2. AVONEX [Suspect]
     Route: 030
     Dates: start: 20100616, end: 20100915

REACTIONS (5)
  - VISION BLURRED [None]
  - DIPLOPIA [None]
  - VOMITING [None]
  - MIGRAINE [None]
  - DYSKINESIA [None]
